FAERS Safety Report 5698438-8 (Version None)
Quarter: 2008Q2

REPORT INFORMATION
  Report Type: 
  Country: None (occurrence: None)
  Receive Date: 20080408
  Receipt Date: 20060615
  Transmission Date: 20081010
  Serious: Yes (Other)
  Sender: FDA-Public Use
  Company Number: US-BAYER-US-2004-029797

PATIENT
  Age: 62 Year
  Sex: Female
  Weight: 65 kg

DRUGS (24)
  1. CLIMARA [Suspect]
     Indication: HORMONE REPLACEMENT THERAPY
     Route: 062
     Dates: start: 19971101, end: 19990831
  2. PREMPRO [Suspect]
     Indication: HORMONE REPLACEMENT THERAPY
     Route: 048
  3. PREMARIN [Suspect]
     Indication: HORMONE REPLACEMENT THERAPY
     Route: 048
     Dates: start: 19901126, end: 20001101
  4. PROVERA [Suspect]
     Indication: HORMONE REPLACEMENT THERAPY
     Dates: start: 19880101, end: 19911201
  5. PROVERA [Suspect]
     Dates: start: 19911201, end: 20001101
  6. OGEN [Suspect]
     Indication: HORMONE REPLACEMENT THERAPY
  7. ESTRADERM [Suspect]
     Indication: HORMONE REPLACEMENT THERAPY
     Route: 062
     Dates: start: 19920311, end: 19930311
  8. ESTRADERM [Suspect]
     Dates: end: 19940601
  9. CYCRIN [Suspect]
     Indication: HORMONE REPLACEMENT THERAPY
     Dates: start: 19971117, end: 19971217
  10. MPA [Suspect]
     Indication: HORMONE REPLACEMENT THERAPY
  11. ESTROGEN NOS [Suspect]
     Indication: HORMONE REPLACEMENT THERAPY
  12. PREMARIN [Suspect]
     Route: 067
     Dates: start: 19920311, end: 19970323
  13. PREDNISONE [Concomitant]
     Indication: ARTHRITIS
     Route: 048
     Dates: start: 19950101, end: 20030101
  14. ACTIGALL [Concomitant]
     Dates: start: 19950101, end: 19960101
  15. SULINDAC [Concomitant]
     Dates: start: 19960101, end: 19970101
  16. HYDROCHLOROTHIAZIDE [Concomitant]
     Dates: start: 19960101, end: 19970101
  17. SULFASALAZINE [Concomitant]
     Dates: start: 19980101, end: 20000101
  18. ARAVA [Concomitant]
     Indication: ARTHRITIS
     Dates: start: 20030101, end: 20030101
  19. HUMIRA [Concomitant]
     Indication: RHEUMATOID ARTHRITIS
     Route: 030
  20. METHOTREXATE [Concomitant]
     Indication: RHEUMATOID ARTHRITIS
  21. FOSAMAX [Concomitant]
     Indication: OSTEOPOROSIS
     Dosage: UNIT DOSE: 70 MG
     Route: 048
  22. ZETIA [Concomitant]
     Dosage: UNIT DOSE: 10 MG
     Route: 048
  23. ALEVE [Concomitant]
  24. PREDNISONE [Concomitant]

REACTIONS (10)
  - AORTIC STENOSIS [None]
  - BREAST CANCER [None]
  - DEFORMITY [None]
  - DEPRESSION [None]
  - HOT FLUSH [None]
  - HYPOAESTHESIA [None]
  - LOW DENSITY LIPOPROTEIN INCREASED [None]
  - METRORRHAGIA [None]
  - PROCEDURAL PAIN [None]
  - UTERINE LEIOMYOMA [None]
